FAERS Safety Report 7391210-2 (Version None)
Quarter: 2011Q2

REPORT INFORMATION
  Report Type: 
  Country: None (occurrence: None)
  Receive Date: 20110404
  Receipt Date: 20100514
  Transmission Date: 20111010
  Serious: Yes (Other)
  Sender: FDA-Public Use
  Company Number: US-PFIZER INC-2010041590

PATIENT
  Sex: Female
  Weight: 59.86 kg

DRUGS (7)
  1. ZOLOFT [Suspect]
     Indication: ANXIETY
  2. VICODIN [Concomitant]
     Indication: NECK PAIN
     Dosage: [HYDROCODONE BITARTRATE 5 MG]/[ACETAMINOPHEN 500 MG], AS NEEDED
     Route: 048
  3. ZOLOFT [Suspect]
     Indication: DEPRESSION
     Dosage: 200 MG, 1X/DAY
     Route: 048
     Dates: start: 20090101
  4. FLEXERIL [Concomitant]
     Indication: NECK PAIN
     Dosage: 10 MG, AS NEEDED
     Route: 048
  5. XANAX [Concomitant]
     Indication: SLEEP DISORDER
     Dosage: UNK
     Route: 048
  6. XANAX [Concomitant]
     Indication: ANXIETY
  7. NEURONTIN [Concomitant]
     Indication: NERVE INJURY
     Dosage: UNK
     Route: 048

REACTIONS (2)
  - DEPRESSION [None]
  - DRUG EFFECT DECREASED [None]
